FAERS Safety Report 6683875-5 (Version None)
Quarter: 2010Q2

REPORT INFORMATION
  Report Type: 
  Country: None (occurrence: None)
  Receive Date: 20100416
  Receipt Date: 20100406
  Transmission Date: 20101027
  Serious: Yes (Life-Threatening, Hospitalization)
  Sender: FDA-Public Use
  Company Number: FR-JNJFOC-20091204980

PATIENT
  Sex: Male
  Weight: 53 kg

DRUGS (12)
  1. INTELENCE [Suspect]
     Indication: HIV INFECTION
     Route: 048
  2. NORVIR [Concomitant]
     Indication: HIV INFECTION
     Route: 048
  3. ISENTRESS [Concomitant]
     Indication: HIV INFECTION
     Route: 048
  4. CORTANCYL [Concomitant]
     Route: 048
  5. INVIRASE [Concomitant]
     Indication: HIV INFECTION
     Route: 048
  6. PLAVIX [Concomitant]
  7. NEXIUM [Concomitant]
  8. CITALOPRAM HYDROBROMIDE [Concomitant]
  9. VITAMIN D3 [Concomitant]
  10. VITAMIN B COMPLEX TAB [Concomitant]
  11. CALCIPARINE [Concomitant]
  12. PLAQUENIL [Concomitant]

REACTIONS (3)
  - DRUG RASH WITH EOSINOPHILIA AND SYSTEMIC SYMPTOMS [None]
  - EOSINOPHILIC PNEUMONIA [None]
  - INTERSTITIAL LUNG DISEASE [None]
